FAERS Safety Report 4420613-0 (Version None)
Quarter: 2004Q3

REPORT INFORMATION
  Report Type: 
  Country: None (occurrence: None)
  Receive Date: 20040809
  Receipt Date: 20040408
  Transmission Date: 20050211
  Serious: Yes (Hospitalization, Other)
  Sender: FDA-Public Use
  Company Number: US-GLAXOSMITHKLINE-A0506521A

PATIENT
  Age: 74 Year
  Sex: Female
  Weight: 50 kg

DRUGS (13)
  1. PAXIL [Suspect]
     Indication: DEPRESSION
     Dosage: 40MG PER DAY
     Route: 048
  2. HYDROCHLOROTHIAZIDE + TRIAMTERENE [Concomitant]
     Route: 065
  3. NEXIUM [Concomitant]
     Dosage: 20MG PER DAY
  4. LODRANE [Concomitant]
  5. PREDNISONE TAB [Concomitant]
     Dosage: 2MG VARIABLE DOSE
  6. KCL POTASSIUM CHLORIDE [Concomitant]
     Dosage: 10MEQ PER DAY
  7. DITROPAN XL [Concomitant]
     Dosage: 10MG PER DAY
  8. LISINOPRIL [Concomitant]
     Dosage: 40MG PER DAY
  9. UNISOM [Concomitant]
  10. NORVASC [Concomitant]
     Dosage: 10MG PER DAY
  11. PREMARIN [Concomitant]
     Dosage: 1.25MG PER DAY
  12. BUSPIRONE [Concomitant]
     Dosage: 10MG PER DAY
  13. CELEBREX [Concomitant]
     Dosage: 200MG PER DAY

REACTIONS (1)
  - HYPONATRAEMIA [None]
